FAERS Safety Report 4270635-8 (Version None)
Quarter: 2004Q1

REPORT INFORMATION
  Report Type: 
  Country: None (occurrence: None)
  Receive Date: 20040114
  Receipt Date: 20031113
  Transmission Date: 20041129
  Serious: Yes (Other)
  Sender: FDA-Public Use
  Company Number: PHNR2003AU01624

PATIENT
  Age: 72 Year
  Sex: Female

DRUGS (6)
  1. CLOZARIL [Suspect]
     Indication: SCHIZOPHRENIA
     Dosage: 12 - 225 MG/DAY
     Route: 048
     Dates: start: 19961209, end: 19961201
  2. CLOZARIL [Suspect]
     Dosage: 25 - 550 MG/DAY
     Route: 048
     Dates: start: 20000523, end: 20000801
  3. CLOZARIL [Suspect]
     Dosage: 12.5 - 650 MG/DAY
     Route: 048
     Dates: start: 20020713
  4. COLOXYL WITH SENNA [Concomitant]
     Dosage: TWO BD
  5. MACRODANTIN [Concomitant]
     Dosage: 50 MG NOCTE
  6. VALPROIC ACID [Concomitant]
     Dosage: 350 MG, BID

REACTIONS (3)
  - BALANCE DISORDER [None]
  - CONVULSION [None]
  - INFLUENZA [None]
